FAERS Safety Report 7296324-3 (Version None)
Quarter: 2011Q1

REPORT INFORMATION
  Report Type: 
  Country: None (occurrence: None)
  Receive Date: 20110211
  Receipt Date: 20110211
  Transmission Date: 20110831
  Serious: No
  Sender: FDA-Public Use
  Company Number: None

PATIENT
  Sex: Female
  Weight: 68.0396 kg

DRUGS (1)
  1. ZOCOR [Suspect]
     Indication: BLOOD CHOLESTEROL INCREASED
     Dosage: 1 DAY 40 MG 1 DAILY
     Dates: start: 20100801

REACTIONS (4)
  - MYALGIA [None]
  - ABASIA [None]
  - ARTHRALGIA [None]
  - PAIN [None]
